FAERS Safety Report 9112791 (Version 12)
Quarter: 2021Q2

REPORT INFORMATION
  Report Type: Other
  Country: US (occurrence: US)
  Receive Date: 20130211
  Receipt Date: 20210521
  Transmission Date: 20210717
  Serious: Yes (Other)
  Sender: FDA-Public Use
  Company Number: US-ROCHE-1187032

PATIENT

DRUGS (5)
  1. BEVACIZUMAB. [Suspect]
     Active Substance: BEVACIZUMAB
     Indication: COLORECTAL CANCER METASTATIC
     Route: 065
  2. 5?FLUOROURACIL [Suspect]
     Active Substance: FLUOROURACIL
     Dosage: ADMINISTERED OVER 46 H ON DAY 2;
     Route: 042
  3. OXALIPLATIN. [Suspect]
     Active Substance: OXALIPLATIN
     Indication: COLORECTAL CANCER METASTATIC
     Dosage: ADMINISTERED ON DAY 1
     Route: 042
  4. 5?FLUOROURACIL [Suspect]
     Active Substance: FLUOROURACIL
     Indication: COLORECTAL CANCER METASTATIC
     Dosage: ON DAYS 1 AND 2 OF EACH CYCLE
     Route: 040
  5. LEUCOVORIN. [Suspect]
     Active Substance: LEUCOVORIN
     Indication: COLORECTAL CANCER METASTATIC
     Dosage: ADMINISTERED ON DAY 1 OF EACH CYCLE.
     Route: 065

REACTIONS (21)
  - Nausea [Unknown]
  - Hypokalaemia [Unknown]
  - Dysaesthesia [Unknown]
  - Deep vein thrombosis [Unknown]
  - Infusion related reaction [Unknown]
  - Decreased appetite [Unknown]
  - Hypertension [Unknown]
  - Diarrhoea [Unknown]
  - Mucosal inflammation [Unknown]
  - Stomatitis [Unknown]
  - Weight decreased [Unknown]
  - Skin disorder [Unknown]
  - Neuropathy peripheral [Unknown]
  - Vomiting [Unknown]
  - Pyrexia [Unknown]
  - Neutropenia [Unknown]
  - Paraesthesia [Unknown]
  - Dehydration [Unknown]
  - Fatigue [Unknown]
  - Palmar-plantar erythrodysaesthesia syndrome [Unknown]
  - Asthenia [Unknown]
